FAERS Safety Report 5943223-2 (Version None)
Quarter: 2008Q4

REPORT INFORMATION
  Report Type: 
  Country: None (occurrence: None)
  Receive Date: 20081106
  Receipt Date: 20081027
  Transmission Date: 20090506
  Serious: Yes (Hospitalization)
  Sender: FDA-Public Use
  Company Number: B0544938A

PATIENT
  Age: 7 Year
  Sex: Male

DRUGS (2)
  1. FLUTICASONE PROPIONATE [Suspect]
     Indication: ASTHMA
     Dosage: 125UG TWICE PER DAY
     Route: 055
  2. BUDESONIDE [Suspect]
     Indication: ASTHMA
     Route: 055

REACTIONS (11)
  - ADRENAL INSUFFICIENCY [None]
  - ANOREXIA [None]
  - BLOOD CORTISOL DECREASED [None]
  - FATIGUE [None]
  - GROWTH RETARDATION [None]
  - HYPERKALAEMIA [None]
  - HYPONATRAEMIA [None]
  - LETHARGY [None]
  - METABOLIC ACIDOSIS [None]
  - RHABDOMYOLYSIS [None]
  - VOMITING [None]
